FAERS Safety Report 4477432-9 (Version None)
Quarter: 2004Q4

REPORT INFORMATION
  Report Type: 
  Country: None (occurrence: None)
  Receive Date: 20041012
  Receipt Date: 20040927
  Transmission Date: 20050328
  Serious: Yes (Hospitalization)
  Sender: FDA-Public Use
  Company Number: 2004-02915

PATIENT
  Age: 55 Year
  Sex: Male

DRUGS (2)
  1. IMMUCYST (BCG - IT (CONNAUGHT)), AVENTIS PASTEUR LTD., LOT NOT REP, 13 [Suspect]
     Indication: BLADDER CANCER
     Dosage: 81.0 MG B. IN., BLADDER
     Dates: start: 20040817
  2. DICLOFENAC SODIUM [Concomitant]

REACTIONS (5)
  - ARTHRITIS BACTERIAL [None]
  - CYSTITIS [None]
  - PYREXIA [None]
  - REITER'S SYNDROME [None]
  - WHITE BLOOD CELL COUNT INCREASED [None]
